FAERS Safety Report 6107511-1 (Version None)
Quarter: 2009Q1

REPORT INFORMATION
  Report Type: 
  Country: None (occurrence: None)
  Receive Date: 20090309
  Receipt Date: 20090225
  Transmission Date: 20090719
  Serious: Yes (Death, Hospitalization, Other)
  Sender: FDA-Public Use
  Company Number: JP-PFIZER INC-2008090290

PATIENT

DRUGS (4)
  1. HEPARIN SODIUM INJECTION [Suspect]
     Indication: ANTICOAGULANT THERAPY
     Dosage: UNK
     Route: 042
     Dates: start: 20051222, end: 20060111
  2. FRAGMIN [Suspect]
     Indication: DISSEMINATED INTRAVASCULAR COAGULATION
     Dosage: 500 IU, 1X/DAY
     Route: 042
     Dates: start: 20060112, end: 20060130
  3. FRAGMIN [Suspect]
     Indication: HAEMODIALYSIS
  4. NAFAMOSTAT MESILATE [Concomitant]
     Route: 042

REACTIONS (6)
  - CONDITION AGGRAVATED [None]
  - DEEP VEIN THROMBOSIS [None]
  - GANGRENE [None]
  - HEPARIN-INDUCED THROMBOCYTOPENIA [None]
  - HEPATIC FUNCTION ABNORMAL [None]
  - SEPSIS [None]
